FAERS Safety Report 5290229-5 (Version None)
Quarter: 2007Q2

REPORT INFORMATION
  Report Type: 
  Country: None (occurrence: None)
  Receive Date: 20070402
  Receipt Date: 20070327
  Transmission Date: 20071010
  Serious: Yes (Other)
  Sender: FDA-Public Use
  Company Number: 2007US-06570

PATIENT
  Age: 33 Year
  Sex: Female

DRUGS (3)
  1. RAN-FENTANYL TRANSDERMAL SYSTEM (FENTANYL) PATCH, 25MCG/HR [Suspect]
     Indication: ANALGESIC EFFECT
     Dosage: 25 MCG/HR, FOR 3 DAYS, TRANSDERMAL
     Route: 062
  2. MORPHINE SULFATE [Suspect]
     Indication: ANALGESIC EFFECT
     Dosage: 3-5 MG PERIOPERATIVELY, INTRAVENOUS
     Route: 042
  3. HYDROMORPHONE HCL [Suspect]
     Indication: ANALGESIC EFFECT
     Dosage: 1.25MG PERIOPERATIVELY, INTRAVENOUS
     Route: 042

REACTIONS (1)
  - HALLUCINATIONS, MIXED [None]
